FAERS Safety Report 5622017-1 (Version None)
Quarter: 2008Q1

REPORT INFORMATION
  Report Type: 
  Country: None (occurrence: None)
  Receive Date: 20080211
  Receipt Date: 20080131
  Transmission Date: 20080703
  Serious: Yes (Hospitalization)
  Sender: FDA-Public Use
  Company Number: BR-JNJFOC-20080200289

PATIENT
  Sex: Male
  Weight: 4.74 kg

DRUGS (1)
  1. MICRONOR [Suspect]
     Indication: DRUG EXPOSURE VIA BREAST MILK

REACTIONS (6)
  - ANAEMIA [None]
  - DIARRHOEA [None]
  - DRUG EXPOSURE VIA BREAST MILK [None]
  - EOSINOPHIL COUNT INCREASED [None]
  - HAEMATOCHEZIA [None]
  - RECTAL ULCER [None]
